FAERS Safety Report 22362163 (Version 1)
Quarter: 2023Q2

REPORT INFORMATION
  Report Type: Spontaneous
  Country: SE (occurrence: SE)
  Receive Date: 20230524
  Receipt Date: 20230524
  Transmission Date: 20230721
  Serious: Yes (Death)
  Sender: FDA-Public Use
  Company Number: None

PATIENT
  Age: 82 Year
  Sex: Female

DRUGS (4)
  1. OLANZAPINE [Suspect]
     Active Substance: OLANZAPINE
     Indication: Schizophrenia
     Dosage: 2.5 MG, BID
     Route: 048
     Dates: start: 20230505, end: 20230510
  2. OLANZAPINE [Suspect]
     Active Substance: OLANZAPINE
     Indication: Agitation
  3. OLANZAPINE [Suspect]
     Active Substance: OLANZAPINE
     Indication: Aggression
  4. JANUVIA [Concomitant]
     Active Substance: SITAGLIPTIN PHOSPHATE
     Indication: Product used for unknown indication
     Dosage: UNK, UNKNOWN
     Route: 065

REACTIONS (3)
  - Depressed level of consciousness [Fatal]
  - Hyperglycaemic hyperosmolar nonketotic syndrome [Fatal]
  - Metabolic syndrome [Fatal]

NARRATIVE: CASE EVENT DATE: 20230507
